FAERS Safety Report 21632753 (Version 2)
Quarter: 2022Q4

REPORT INFORMATION
  Report Type: Report from Study
  Country: US (occurrence: US)
  Receive Date: 20221123
  Receipt Date: 20221205
  Transmission Date: 20230113
  Serious: Yes (Hospitalization, Other)
  Sender: FDA-Public Use
  Company Number: US-BRISTOL-MYERS SQUIBB COMPANY-2022-125845

PATIENT
  Age: 58 Year
  Sex: Female
  Weight: 59.2 kg

DRUGS (8)
  1. ORENCIA [Suspect]
     Active Substance: ABATACEPT
     Indication: Rheumatoid arthritis
     Dosage: FREQUENCY: WEEKLY. 08 SEP 2022 WAS 1ST INJECTION.
     Route: 058
     Dates: start: 20220908
  2. ORENCIA [Suspect]
     Active Substance: ABATACEPT
     Dosage: FREQUENCY: WEEKLY. 15 SEP 2022 WAS 2ND INJECTION.
     Route: 058
     Dates: start: 20220915
  3. ORENCIA [Suspect]
     Active Substance: ABATACEPT
     Dosage: FREQUENCY: WEEKLY. 22 SEP 2022 WAS 3RD INJECTION.
     Route: 058
     Dates: start: 20220915
  4. VANCOMYCIN [Concomitant]
     Active Substance: VANCOMYCIN
     Indication: Clostridium difficile infection
     Route: 048
  5. DIFICID [Concomitant]
     Active Substance: FIDAXOMICIN
     Indication: Seizure
     Route: 065
  6. KEPPRA [Concomitant]
     Active Substance: LEVETIRACETAM
     Indication: Seizure
     Route: 065
  7. SYNTHROID [Concomitant]
     Active Substance: LEVOTHYROXINE SODIUM
     Indication: Thyroid disorder
     Route: 065
  8. LYRICA [Concomitant]
     Active Substance: PREGABALIN
     Indication: Product used for unknown indication
     Route: 065

REACTIONS (2)
  - Influenza like illness [Unknown]
  - Clostridium difficile infection [Not Recovered/Not Resolved]

NARRATIVE: CASE EVENT DATE: 20220922
